FAERS Safety Report 5146760-6 (Version None)
Quarter: 2006Q4

REPORT INFORMATION
  Report Type: 
  Country: None (occurrence: None)
  Receive Date: 20061109
  Receipt Date: 20061004
  Transmission Date: 20070319
  Serious: Yes (Other)
  Sender: FDA-Public Use
  Company Number: ES-JNJFOC-20061006934

PATIENT
  Age: 71 Year
  Sex: Male

DRUGS (2)
  1. HALOPERIDOL [Suspect]
     Indication: HALLUCINATION, VISUAL
     Route: 065
  2. HALOPERIDOL [Suspect]
     Indication: COGNITIVE DISORDER
     Route: 065

REACTIONS (4)
  - BRADYPHRENIA [None]
  - DEPRESSED LEVEL OF CONSCIOUSNESS [None]
  - DYSPHAGIA [None]
  - PARKINSONISM [None]
